FAERS Safety Report 4589256-2 (Version None)
Quarter: 2005Q1

REPORT INFORMATION
  Report Type: 
  Country: None (occurrence: None)
  Receive Date: 20050217
  Receipt Date: 20050217
  Transmission Date: 20050727
  Serious: Yes (Life-Threatening, Hospitalization)
  Sender: FDA-Public Use
  Company Number: None

PATIENT
  Sex: Female
  Weight: 30 kg

DRUGS (1)
  1. HEPARIN [Suspect]
     Indication: ANTIBACTERIAL PROPHYLAXIS
     Dosage: 2.5 CC FOUR TIMES DAILY, THEN ONCE DAILY

REACTIONS (4)
  - BACTERIAL INFECTION [None]
  - BLOOD CULTURE POSITIVE [None]
  - HYPOTENSION [None]
  - PYREXIA [None]
